FAERS Safety Report 8984987 (Version 3)
Quarter: 2013Q1

REPORT INFORMATION
  Report Type: Spontaneous
  Country: US (occurrence: US)
  Receive Date: 20121226
  Receipt Date: 20130122
  Transmission Date: 20140127
  Serious: No
  Sender: FDA-Public Use
  Company Number: US-PFIZER INC-2012324404

PATIENT
  Age: 56 Year
  Sex: Female
  Weight: 70.3 kg

DRUGS (1)
  1. ADVIL [Suspect]
     Indication: HEADACHE
     Dosage: UNK, AS NEEDED
     Route: 048

REACTIONS (2)
  - Burning sensation [Not Recovered/Not Resolved]
  - Product quality issue [Not Recovered/Not Resolved]
